FAERS Safety Report 9853610 (Version 1)
Quarter: 2014Q1

REPORT INFORMATION
  Report Type: Spontaneous
  Country: US (occurrence: US)
  Receive Date: 20140129
  Receipt Date: 20140129
  Transmission Date: 20141002
  Serious: No
  Sender: FDA-Public Use
  Company Number: US-009507513-1401USA009908

PATIENT
  Age: 33 Year
  Sex: Female

DRUGS (3)
  1. CLARITIN-D [Suspect]
     Indication: NASOPHARYNGITIS
     Dosage: UNK, UNKNOWN
     Route: 048
     Dates: start: 20140112
  2. CLARITIN-D [Suspect]
     Indication: RESPIRATORY TRACT CONGESTION
     Dosage: UNK, UNKNOWN
     Route: 048
  3. CLARITIN-D [Suspect]
     Indication: RHINORRHOEA

REACTIONS (2)
  - Feeling abnormal [Unknown]
  - Insomnia [Unknown]
